FAERS Safety Report 8376871-3 (Version None)
Quarter: 2012Q2

REPORT INFORMATION
  Report Type: 
  Country: None (occurrence: None)
  Receive Date: 20120518
  Receipt Date: 20120510
  Transmission Date: 20120825
  Serious: Yes (Other)
  Sender: FDA-Public Use
  Company Number: 2012MA006138

PATIENT
  Age: 43 Year
  Sex: Male

DRUGS (6)
  1. IBUPROFEN [Suspect]
     Indication: BACK PAIN
  2. SULPIRID [Concomitant]
  3. LAMOTRIGINE [Concomitant]
  4. CLOZAPINE [Suspect]
     Dosage: 650 MG;QD;PO
     Route: 048
     Dates: start: 20050701
  5. ACETAMINOPHEN AND CODEINE PHOSPHATE [Suspect]
     Indication: BACK PAIN
  6. CLOZAPINE [Concomitant]

REACTIONS (4)
  - WHITE BLOOD CELL COUNT DECREASED [None]
  - NEUTROPENIA [None]
  - DRUG INTERACTION [None]
  - BACK DISORDER [None]
